FAERS Safety Report 10187588 (Version 1)
Quarter: 2014Q2

REPORT INFORMATION
  Report Type: Spontaneous
  Country: US (occurrence: US)
  Receive Date: 20140522
  Receipt Date: 20140522
  Transmission Date: 20141212
  Serious: No
  Sender: FDA-Public Use
  Company Number: US-SANOFI-AVENTIS-2013SA082100

PATIENT
  Sex: 0

DRUGS (3)
  1. LANTUS [Suspect]
     Route: 065
  2. CALCIUM [Concomitant]
  3. MAGNESIUM [Concomitant]

REACTIONS (3)
  - Muscle spasms [Unknown]
  - Pain [Unknown]
  - Blood glucose increased [Unknown]
